FAERS Safety Report 8362382 (Version 4)
Quarter: 2012Q4

REPORT INFORMATION
  Report Type: 
  Country: US (occurrence: US)
  Receive Date: 20120130
  Receipt Date: 20120911
  Transmission Date: 20130627
  Serious: Yes (Other)
  Sender: FDA-Public Use
  Company Number: US-ROCHE-1034434

PATIENT
  Age: 18 Year
  Sex: Female

DRUGS (5)
  1. ACCUTANE [Suspect]
     Indication: ACNE
     Dosage: 20 mg in morning and 10 mg in night
     Route: 065
     Dates: start: 19981211
  2. ACCUTANE [Suspect]
     Dosage: 30 mg in morning and 20 mg in night
     Route: 065
     Dates: start: 19990108
  3. ACCUTANE [Suspect]
     Dosage: 30 mg in morning and 30 mg in night
     Route: 065
     Dates: start: 19990205
  4. ACCUTANE [Suspect]
     Dosage: 30 mg in morning and 30 mg in night
     Route: 065
     Dates: start: 19990309, end: 199904
  5. ACCUTANE [Suspect]
     Route: 065
     Dates: start: 19990907

REACTIONS (11)
  - Inflammatory bowel disease [Unknown]
  - Anxiety [Unknown]
  - Colitis ulcerative [Unknown]
  - Dry skin [Unknown]
  - Skin disorder [Unknown]
  - Hair growth abnormal [Unknown]
  - Contusion [Unknown]
  - Blood cholesterol increased [Unknown]
  - Blood triglycerides increased [Unknown]
  - Dry mouth [Unknown]
  - Lip dry [Unknown]
